FAERS Safety Report 24211744 (Version 1)
Quarter: 2024Q3

REPORT INFORMATION
  Report Type: Report from Study
  Country: US (occurrence: US)
  Receive Date: 20240814
  Receipt Date: 20240814
  Transmission Date: 20241016
  Serious: Yes (Hospitalization)
  Sender: GRIFOLS
  Company Number: US-IGSA-BIG0029720

PATIENT
  Age: 46 Year
  Sex: Female
  Weight: 71.655 kg

DRUGS (30)
  1. PROLASTIN-C LIQUID [Suspect]
     Active Substance: .ALPHA.1-PROTEINASE INHIBITOR HUMAN
     Indication: Alpha-1 antitrypsin deficiency
     Dosage: UNK, Q.WK.
     Route: 042
     Dates: start: 20240531
  2. PROLASTIN-C LIQUID [Suspect]
     Active Substance: .ALPHA.1-PROTEINASE INHIBITOR HUMAN
     Dosage: UNK UNKNOWN, Q.WK.
     Route: 042
     Dates: start: 20240628
  3. PROLASTIN-C LIQUID [Suspect]
     Active Substance: .ALPHA.1-PROTEINASE INHIBITOR HUMAN
     Dosage: 4164 MILLIGRAM, Q.WK.
     Route: 042
  4. EPINEPHRINE [Concomitant]
     Active Substance: EPINEPHRINE
  5. HEPARIN [Concomitant]
     Active Substance: HEPARIN SODIUM
  6. LIDOCAINE [Concomitant]
     Active Substance: LIDOCAINE
  7. SODIUM CHLORIDE [Concomitant]
     Active Substance: SODIUM CHLORIDE
  8. VYVANSE [Concomitant]
     Active Substance: LISDEXAMFETAMINE DIMESYLATE
  9. UBRELVY [Concomitant]
     Active Substance: UBROGEPANT
  10. ALBUTEROL SULFATE [Concomitant]
     Active Substance: ALBUTEROL SULFATE
  11. PREGABALIN [Concomitant]
     Active Substance: PREGABALIN
  12. SERTRALINE HYDROCHLORIDE [Concomitant]
     Active Substance: SERTRALINE HYDROCHLORIDE
  13. MELOXICAM [Concomitant]
     Active Substance: MELOXICAM
  14. LUBIPROSTONE [Concomitant]
     Active Substance: LUBIPROSTONE
  15. MECLIZINE HYDROCHLORIDE [Concomitant]
     Active Substance: MECLIZINE HYDROCHLORIDE
  16. LORATADINE [Concomitant]
     Active Substance: LORATADINE
  17. GLYCERIN ADULT [Concomitant]
     Active Substance: GLYCERIN
  18. NICOTINE [Concomitant]
     Active Substance: NICOTINE
  19. CLONIDINE HYDROCHLORIDE [Concomitant]
     Active Substance: CLONIDINE HYDROCHLORIDE
  20. MUCINEX [Concomitant]
     Active Substance: GUAIFENESIN
  21. FLUTICASONE FUROATE\SALMETEROL XINAFOATE [Concomitant]
     Active Substance: FLUTICASONE FUROATE\SALMETEROL XINAFOATE
  22. LYRICA [Concomitant]
     Active Substance: PREGABALIN
  23. TIZANIDINE HYDROCHLORIDE [Concomitant]
     Active Substance: TIZANIDINE HYDROCHLORIDE
  24. VITAMIN D3 [Concomitant]
     Active Substance: CHOLECALCIFEROL
  25. DICLOFENAC SODIUM [Concomitant]
     Active Substance: DICLOFENAC\DICLOFENAC SODIUM
  26. AMITIZA [Concomitant]
     Active Substance: LUBIPROSTONE
  27. ATENOLOL [Concomitant]
     Active Substance: ATENOLOL
  28. COMPAZINE [Concomitant]
     Active Substance: PROCHLORPERAZINE MALEATE
  29. QUETIAPINE FUMARATE [Concomitant]
     Active Substance: QUETIAPINE FUMARATE
  30. LITHIUM CARBONATE [Concomitant]
     Active Substance: LITHIUM CARBONATE

REACTIONS (12)
  - Chills [Unknown]
  - Joint stiffness [Unknown]
  - Fatigue [Unknown]
  - Headache [Unknown]
  - Nausea [Unknown]
  - Dyspnoea [Unknown]
  - Pyrexia [Unknown]
  - Tremor [Unknown]
  - Muscular weakness [Unknown]
  - Musculoskeletal stiffness [Unknown]
  - Migraine [Unknown]
  - Pruritus [Unknown]

NARRATIVE: CASE EVENT DATE: 20240531
